FAERS Safety Report 9107705 (Version 2)
Quarter: 2013Q1

REPORT INFORMATION
  Report Type: Spontaneous
  Country: JP (occurrence: JP)
  Receive Date: 20130221
  Receipt Date: 20130318
  Transmission Date: 20140127
  Serious: Yes (Hospitalization, Other)
  Sender: FDA-Public Use
  Company Number: JP-ROCHE-1192581

PATIENT
  Age: 75 Year
  Sex: Female
  Weight: 52 kg

DRUGS (8)
  1. HERCEPTIN [Suspect]
     Indication: BREAST CANCER
     Route: 041
     Dates: start: 20120216, end: 20120216
  2. HERCEPTIN [Suspect]
     Indication: BREAST CANCER
     Route: 041
     Dates: end: 20130123
  3. URSO [Concomitant]
     Route: 048
  4. BEZATOL SR [Concomitant]
     Route: 048
  5. DIOVAN [Concomitant]
     Route: 048
  6. FAMOTIDINE D [Concomitant]
     Route: 048
  7. DEPAKENE-R [Concomitant]
     Indication: METASTASES TO CENTRAL NERVOUS SYSTEM
     Route: 048
  8. PREDNISOLONE [Concomitant]
     Indication: METASTASES TO CENTRAL NERVOUS SYSTEM
     Route: 048

REACTIONS (2)
  - Interstitial lung disease [Recovering/Resolving]
  - Metastases to central nervous system [Recovered/Resolved]
